FAERS Safety Report 13715315 (Version 3)
Quarter: 2019Q1

REPORT INFORMATION
  Report Type: Spontaneous
  Country: US (occurrence: US)
  Receive Date: 20170704
  Receipt Date: 20190314
  Transmission Date: 20190417
  Serious: Yes (Other)
  Sender: FDA-Public Use
  Company Number: US-ELI_LILLY_AND_COMPANY-US201706011048

PATIENT
  Sex: Male

DRUGS (5)
  1. HUMULIN R [Suspect]
     Active Substance: INSULIN HUMAN
     Indication: TYPE 1 DIABETES MELLITUS
     Dosage: UNK, TID
     Route: 058
     Dates: start: 2008
  2. HUMULIN R [Suspect]
     Active Substance: INSULIN HUMAN
     Dosage: 200 U, DAILY
     Route: 058
  3. HUMALOG [Suspect]
     Active Substance: INSULIN LISPRO
     Indication: TYPE 1 DIABETES MELLITUS
     Dosage: UNK, PRN
  4. HUMULIN R [Suspect]
     Active Substance: INSULIN HUMAN
     Dosage: UNK, PRN
     Route: 058
  5. GABAPENTIN. [Concomitant]
     Active Substance: GABAPENTIN
     Indication: NEUROPATHY PERIPHERAL
     Dosage: 400 MG, TID

REACTIONS (12)
  - Chronic lymphocytic leukaemia [Recovering/Resolving]
  - Off label use [Unknown]
  - B-cell small lymphocytic lymphoma [Unknown]
  - Rheumatoid arthritis [Not Recovered/Not Resolved]
  - Chronic lymphocytic leukaemia recurrent [Recovering/Resolving]
  - Neuropathy peripheral [Not Recovered/Not Resolved]
  - Blood glucose decreased [Not Recovered/Not Resolved]
  - Blood glucose decreased [Recovering/Resolving]
  - Blood glucose increased [Not Recovered/Not Resolved]
  - Insulin resistance [Unknown]
  - Blood glucose increased [Not Recovered/Not Resolved]
  - Drug ineffective [Unknown]

NARRATIVE: CASE EVENT DATE: 2009
